FAERS Safety Report 18199393 (Version 3)
Quarter: 2021Q1

REPORT INFORMATION
  Report Type: Spontaneous
  Country: US (occurrence: US)
  Receive Date: 20200826
  Receipt Date: 20210317
  Transmission Date: 20210419
  Serious: No
  Sender: FDA-Public Use
  Company Number: US-PFIZER INC-2020324926

PATIENT
  Age: 54 Year
  Sex: Female

DRUGS (2)
  1. IBRANCE [Suspect]
     Active Substance: PALBOCICLIB
     Indication: BREAST CANCER FEMALE
     Dosage: 125 MG, CYCLIC (125 MG QD X21 DAYS EVERY 28 DAYS)
     Dates: start: 20180127
  2. IBRANCE [Suspect]
     Active Substance: PALBOCICLIB
     Indication: NIPPLE NEOPLASM

REACTIONS (3)
  - Red blood cell count decreased [Unknown]
  - Blood count abnormal [Not Recovered/Not Resolved]
  - White blood cell count decreased [Unknown]
